FAERS Safety Report 7267170-1 (Version None)
Quarter: 2011Q1

REPORT INFORMATION
  Report Type: 
  Country: None (occurrence: None)
  Receive Date: 20110201
  Receipt Date: 20110127
  Transmission Date: 20110831
  Serious: Yes (Death, Life-Threatening, Hospitalization)
  Sender: FDA-Public Use
  Company Number: NL-ASTRAZENECA-2011SE04980

PATIENT
  Sex: Male

DRUGS (1)
  1. DIPRIVAN [Suspect]
     Route: 040

REACTIONS (2)
  - COMA [None]
  - OVERDOSE [None]
